FAERS Safety Report 23067423 (Version 4)
Quarter: 2024Q1

REPORT INFORMATION
  Report Type: Spontaneous
  Country: CO (occurrence: CO)
  Receive Date: 20231016
  Receipt Date: 20240205
  Transmission Date: 20240410
  Serious: Yes (Other)
  Sender: FDA-Public Use
  Company Number: CO-GLAXOSMITHKLINE-CO2023AMR106201

PATIENT

DRUGS (1)
  1. NUCALA [Suspect]
     Active Substance: MEPOLIZUMAB
     Indication: Asthma
     Dosage: 100 MG, Q4W, EVERY 28 DAYS, INJECTION
     Dates: end: 202307

REACTIONS (7)
  - Choking [Not Recovered/Not Resolved]
  - Dysphonia [Recovered/Resolved]
  - Aphonia [Unknown]
  - Agitation [Not Recovered/Not Resolved]
  - Back pain [Unknown]
  - Product dose omission issue [Unknown]
  - Product use in unapproved indication [Unknown]

NARRATIVE: CASE EVENT DATE: 20230701
